FAERS Safety Report 21457632 (Version 1)
Quarter: 2022Q4

REPORT INFORMATION
  Report Type: Spontaneous
  Country: US (occurrence: US)
  Receive Date: 20221014
  Receipt Date: 20221014
  Transmission Date: 20230112
  Serious: Yes (Other)
  Sender: FDA-Public Use
  Company Number: US-BRISTOL-MYERS SQUIBB COMPANY-2022-119900

PATIENT
  Age: 52 Year
  Sex: Male
  Weight: 60.781 kg

DRUGS (1)
  1. REVLIMID [Suspect]
     Active Substance: LENALIDOMIDE
     Indication: Plasma cell myeloma
     Dosage: 1 CAPSULE MWF POST DIALYSIS FOR 3 WEEKS ON AND 1 WEEK OFF, REPEAT CYCLE
     Route: 048
     Dates: start: 20210518

REACTIONS (2)
  - Suicidal ideation [Unknown]
  - Epistaxis [Unknown]

NARRATIVE: CASE EVENT DATE: 20220901
